FAERS Safety Report 20980993 (Version 1)
Quarter: 2022Q2

REPORT INFORMATION
  Report Type: Spontaneous
  Country: GB (occurrence: GB)
  Receive Date: 20220620
  Receipt Date: 20220620
  Transmission Date: 20220721
  Serious: Yes (Other)
  Sender: FDA-Public Use
  Company Number: None

PATIENT
  Age: 78 Year
  Sex: Female
  Weight: 61.79 kg

DRUGS (7)
  1. METHOTREXATE [Suspect]
     Active Substance: METHOTREXATE
     Indication: Product used for unknown indication
     Route: 048
  2. CYCLIZINE [Concomitant]
     Active Substance: CYCLIZINE
     Dosage: 1 TABLET THREE TIMES DAILY
     Dates: start: 20220110
  3. FOLIC ACID [Concomitant]
     Active Substance: FOLIC ACID
     Dosage: 5MG ONCE DAILY ON 6 DAYS OF THE WEEK. 2.5MG/5ML ORAL SOLUTION SUGAR FREE
     Dates: start: 20220224, end: 20220316
  4. INDAPAMIDE [Concomitant]
     Active Substance: INDAPAMIDE
     Dosage: 1 TABLET ONCE A DAY.
     Dates: start: 20220224, end: 20220316
  5. LANSOPRAZOLE [Concomitant]
     Active Substance: LANSOPRAZOLE
     Dosage: 1 CAPSULE DAILY
     Dates: start: 20220224, end: 20220316
  6. MIRABEGRON [Concomitant]
     Active Substance: MIRABEGRON
     Dosage: TAKE 1 TABLET ONCE A DAY
     Dates: start: 20220224, end: 20220316
  7. NIFEDIPINE [Concomitant]
     Active Substance: NIFEDIPINE
     Dosage: ONE AM
     Dates: start: 20220224, end: 20220316

REACTIONS (1)
  - Sepsis [Recovered/Resolved]
